FAERS Safety Report 8756939 (Version 1)
Quarter: 2012Q4

REPORT INFORMATION
  Report Type: 
  Country: US (occurrence: US)
  Receive Date: 20120828
  Receipt Date: 20120828
  Transmission Date: 20130627
  Serious: Yes (Other)
  Sender: FDA-Public Use
  Company Number: US-BAYER-2012-086889

PATIENT
  Age: 45 Year
  Sex: Female
  Weight: 77 kg

DRUGS (6)
  1. YAZ [Suspect]
     Indication: CONTRACEPTION
  2. YASMIN [Suspect]
     Indication: CONTRACEPTION
  3. YASMIN [Suspect]
     Indication: METRORRHAGIA
  4. OCELLA [Suspect]
  5. AMOXICILLIN [Concomitant]
     Dosage: 875 mg, UNK
     Route: 048
     Dates: start: 20100224
  6. AZITHROMYCIN [Concomitant]
     Dosage: 250 mg, UNK
     Route: 048
     Dates: start: 20100301

REACTIONS (1)
  - Deep vein thrombosis [Recovered/Resolved]
